FAERS Safety Report 13735183 (Version 1)
Quarter: 2017Q3

REPORT INFORMATION
  Report Type: Spontaneous
  Country: US (occurrence: US)
  Receive Date: 20170707
  Receipt Date: 20170707
  Transmission Date: 20171127
  Serious: No
  Sender: FDA-Public Use
  Company Number: None

PATIENT
  Sex: Female
  Weight: 63 kg

DRUGS (1)
  1. PRALUENT [Suspect]
     Active Substance: ALIROCUMAB
     Indication: HYPERLIPIDAEMIA
     Dosage: ?          OTHER DOSE:MG;OTHER FREQUENCY:EVERY 2 WEEKS;?
     Route: 058

REACTIONS (7)
  - Hypoaesthesia [None]
  - Pruritus [None]
  - Swelling [None]
  - Contusion [None]
  - Myalgia [None]
  - Pain in jaw [None]
  - Muscle spasms [None]
